FAERS Safety Report 4845293-1 (Version None)
Quarter: 2005Q4

REPORT INFORMATION
  Report Type: 
  Country: None (occurrence: None)
  Receive Date: 20051205
  Receipt Date: 20051103
  Transmission Date: 20060501
  Serious: Yes (Death)
  Sender: FDA-Public Use
  Company Number: US-GLAXOSMITHKLINE-A0581275A

PATIENT
  Age: 65 Year
  Sex: Female

DRUGS (6)
  1. AVANDIA [Suspect]
     Route: 065
     Dates: start: 20000101, end: 20040101
  2. INSULIN [Concomitant]
  3. ACTOS [Concomitant]
     Dates: end: 20040405
  4. LOPID [Concomitant]
  5. GLUCOPHAGE [Concomitant]
  6. LASIX [Concomitant]

REACTIONS (20)
  - ABDOMINAL PAIN UPPER [None]
  - BLOOD BILIRUBIN INCREASED [None]
  - BLOOD CHLORIDE INCREASED [None]
  - BLOOD CREATININE INCREASED [None]
  - BLOOD POTASSIUM INCREASED [None]
  - BLOOD UREA INCREASED [None]
  - CREATININE URINE INCREASED [None]
  - DIARRHOEA [None]
  - FLUID RETENTION [None]
  - GLOBULINS INCREASED [None]
  - HEPATIC ENZYME INCREASED [None]
  - HEPATIC FAILURE [None]
  - NAUSEA [None]
  - NERVOUSNESS [None]
  - NOCTURIA [None]
  - RENAL FAILURE [None]
  - TREMOR [None]
  - URINE OUTPUT INCREASED [None]
  - VOMITING [None]
  - WEIGHT INCREASED [None]
